FAERS Safety Report 22096854 (Version 2)
Quarter: 2023Q1

REPORT INFORMATION
  Report Type: Spontaneous
  Country: US (occurrence: US)
  Receive Date: 20230315
  Receipt Date: 20230315
  Transmission Date: 20230417
  Serious: No
  Sender: FDA-Public Use
  Company Number: US-ASTELLAS-2022US031579

PATIENT
  Age: 54 Year
  Sex: Female
  Weight: 60.1 kg

DRUGS (3)
  1. ISAVUCONAZOLE [Suspect]
     Active Substance: ISAVUCONAZOLE
     Indication: Antiviral prophylaxis
     Route: 048
     Dates: start: 20220606, end: 20220608
  2. ISAVUCONAZOLE [Suspect]
     Active Substance: ISAVUCONAZOLE
     Indication: Antifungal prophylaxis
     Route: 048
     Dates: start: 20220609, end: 20220629
  3. ISAVUCONAZOLE [Suspect]
     Active Substance: ISAVUCONAZOLE
     Dosage: 372 MG, OTHER (ONCE)
     Route: 048
     Dates: start: 20220723, end: 20220723

REACTIONS (1)
  - Off label use [Unknown]

NARRATIVE: CASE EVENT DATE: 20220606
